FAERS Safety Report 7611921-0 (Version None)
Quarter: 2011Q3

REPORT INFORMATION
  Report Type: 
  Country: None (occurrence: None)
  Receive Date: 20110715
  Receipt Date: 20110701
  Transmission Date: 20111222
  Serious: Yes (Hospitalization)
  Sender: FDA-Public Use
  Company Number: FR-UCBSA-036508

PATIENT
  Sex: Female

DRUGS (10)
  1. KEPPRA [Concomitant]
     Dosage: 500MG; 6 TABLETS DAILY
  2. VIMPAT [Suspect]
     Dosage: PROGRESSIVE DISCONTINUATION (DECREASE OF 25 MG WEEKLY)
     Route: 048
     Dates: start: 20110224, end: 20110420
  3. ZANEXTRA [Concomitant]
     Dosage: 20MG/10MG (LERCANIDIPINE + ENALAPRIL); 1 TABLET DAILY
  4. LOXAPINE HCL [Concomitant]
     Dates: start: 20110101
  5. PANTOPRAZOLE SODIUM [Concomitant]
  6. XALATAN COLLYRIUM [Concomitant]
     Dosage: 1 DROP DAILY
  7. RISPERDAL [Concomitant]
     Dates: start: 20110101
  8. PRAVASTATIN [Concomitant]
  9. TIAPRIDAL [Concomitant]
     Dates: start: 20110101, end: 20110101
  10. OXAZEPAM [Concomitant]
     Dosage: 50MG

REACTIONS (3)
  - EPILEPSY [None]
  - PSYCHOMOTOR HYPERACTIVITY [None]
  - CONFUSIONAL STATE [None]
